FAERS Safety Report 6175402-6 (Version None)
Quarter: 2009Q2

REPORT INFORMATION
  Report Type: 
  Country: None (occurrence: None)
  Receive Date: 20090429
  Receipt Date: 20090422
  Transmission Date: 20091009
  Serious: Yes (Other)
  Sender: FDA-Public Use
  Company Number: CHPA2009US10061

PATIENT
  Age: 76 Year
  Sex: Female

DRUGS (2)
  1. HYOSCINE HBR HYT [Suspect]
     Indication: NAUSEA
     Dosage: 2 PATCHES FOR 8 HOURS, TRANSDERMAL
     Route: 062
  2. HYOSCINE HBR HYT [Suspect]
     Indication: VERTIGO
     Dosage: 2 PATCHES FOR 8 HOURS, TRANSDERMAL
     Route: 062

REACTIONS (5)
  - ABNORMAL BEHAVIOUR [None]
  - DELUSION [None]
  - HALLUCINATION, VISUAL [None]
  - OVERDOSE [None]
  - WRONG TECHNIQUE IN DRUG USAGE PROCESS [None]
